FAERS Safety Report 13040602 (Version 1)
Quarter: 2016Q4

REPORT INFORMATION
  Report Type: Spontaneous
  Country: US (occurrence: US)
  Receive Date: 20161219
  Receipt Date: 20161219
  Transmission Date: 20170207
  Serious: Yes (Life-Threatening, Hospitalization, Disabling)
  Sender: FDA-Public Use
  Company Number: None

PATIENT
  Age: 51 Year
  Sex: Female
  Weight: 74.25 kg

DRUGS (5)
  1. TAXOL [Concomitant]
     Active Substance: PACLITAXEL
  2. ONDANSATRON [Concomitant]
  3. CARBOPLATIN. [Concomitant]
     Active Substance: CARBOPLATIN
  4. ESTRADIOL TRANSDERMAL SYSTEM [Suspect]
     Active Substance: ESTRADIOL
     Indication: HOT FLUSH
     Dosage: ?          QUANTITY:1 PATCH(ES);OTHER FREQUENCY:3-4 DAYS;?
     Route: 062
     Dates: start: 20160501, end: 20160731
  5. XANAX [Concomitant]
     Active Substance: ALPRAZOLAM

REACTIONS (4)
  - Ovarian cancer stage III [None]
  - Abdominal distension [None]
  - Urinary tract infection [None]
  - Pelvic pain [None]

NARRATIVE: CASE EVENT DATE: 20161108
